FAERS Safety Report 9629248 (Version 1)
Quarter: 2013Q4

REPORT INFORMATION
  Report Type: Spontaneous
  Country: US (occurrence: US)
  Receive Date: 20131017
  Receipt Date: 20131017
  Transmission Date: 20140711
  Serious: No
  Sender: FDA-Public Use
  Company Number: US-ASTRAZENECA-2013SE63243

PATIENT
  Age: 73 Year
  Sex: Female
  Weight: 29 kg

DRUGS (3)
  1. CRESTOR [Suspect]
     Indication: BLOOD CHOLESTEROL ABNORMAL
     Route: 048
     Dates: start: 20130102, end: 201306
  2. ASPIRIN [Concomitant]
     Indication: CARDIAC DISORDER
     Dosage: 81 MG
  3. METOPROLOL TARTRATE [Concomitant]
     Indication: BLOOD PRESSURE FLUCTUATION
     Dosage: ONE HALF OF 25 MG
     Dates: start: 2010

REACTIONS (8)
  - Activities of daily living impaired [Not Recovered/Not Resolved]
  - Arthralgia [Not Recovered/Not Resolved]
  - Fear of falling [Not Recovered/Not Resolved]
  - Myalgia [Not Recovered/Not Resolved]
  - Lipids increased [Not Recovered/Not Resolved]
  - Arthropathy [Not Recovered/Not Resolved]
  - Muscular weakness [Not Recovered/Not Resolved]
  - Off label use [Unknown]
